FAERS Safety Report 9311879 (Version 1)
Quarter: 2013Q2

REPORT INFORMATION
  Report Type: Report from Study
  Country: MX (occurrence: MX)
  Receive Date: 20130528
  Receipt Date: 20130528
  Transmission Date: 20140414
  Serious: Yes (Hospitalization, Other)
  Sender: FDA-Public Use
  Company Number: PHHY2013MX051499

PATIENT
  Age: 40 Year
  Sex: Female

DRUGS (3)
  1. XOLAIR [Suspect]
     Indication: ASTHMA
     Dosage: 2 DF, QMO
     Route: 042
     Dates: start: 2009, end: 201105
  2. XOLAIR [Suspect]
     Dosage: UNK UKN, UNK
     Dates: start: 2011, end: 201111
  3. IBUPROFEN [Suspect]
     Dosage: UNK

REACTIONS (4)
  - Cardio-respiratory arrest [Recovered/Resolved]
  - Anaphylactic shock [Recovered/Resolved]
  - Maternal exposure during pregnancy [Recovered/Resolved]
  - Incorrect route of drug administration [Unknown]
